FAERS Safety Report 8198571-5 (Version None)
Quarter: 2012Q1

REPORT INFORMATION
  Report Type: 
  Country: None (occurrence: None)
  Receive Date: 20120309
  Receipt Date: 20111209
  Transmission Date: 20120608
  Serious: No
  Sender: FDA-Public Use
  Company Number: US-AMGEN-USASP2011065702

PATIENT
  Age: 75 Year
  Sex: Female

DRUGS (6)
  1. HYOSCYAMINE [Concomitant]
     Indication: IRRITABLE BOWEL SYNDROME
     Dosage: UNK
  2. ESTROPIPATE [Concomitant]
     Dosage: UNK
  3. PROLIA [Suspect]
     Indication: OSTEOPOROSIS POSTMENOPAUSAL
     Dosage: 60 MG, Q2MO
     Route: 058
     Dates: start: 20110401
  4. MICARDIS [Concomitant]
     Indication: BLOOD PRESSURE
     Dosage: UNK
  5. NIASPAN [Concomitant]
     Indication: BLOOD CHOLESTEROL
     Dosage: UNK
  6. ALIGN [Concomitant]
     Dosage: UNK

REACTIONS (3)
  - BREAST CALCIFICATIONS [None]
  - PAIN [None]
  - BACK PAIN [None]
